FAERS Safety Report 10874453 (Version 1)
Quarter: 2015Q1

REPORT INFORMATION
  Report Type: Spontaneous
  Country: DK (occurrence: DK)
  Receive Date: 20150227
  Receipt Date: 20150227
  Transmission Date: 20150721
  Serious: Yes (Hospitalization, Other)
  Sender: FDA-Public Use
  Company Number: DK-BAYER-2015-019754

PATIENT
  Age: 73 Year

DRUGS (7)
  1. PREDNISOLON [Concomitant]
     Active Substance: PREDNISOLONE
     Dosage: 25 MG, BID
     Dates: start: 20141223, end: 20150112
  2. NEXAVAR [Suspect]
     Active Substance: SORAFENIB
     Indication: THYROID CANCER METASTATIC
     Dosage: UNK
     Dates: start: 20141002, end: 20150112
  3. PREDNISOLON [Concomitant]
     Active Substance: PREDNISOLONE
     Dosage: 100 MG, DAILY
     Dates: start: 20140131, end: 20140820
  4. PREDNISOLON [Concomitant]
     Active Substance: PREDNISOLONE
     Dosage: 75 MG, BID
     Dates: start: 20150206
  5. PREDNISOLON [Concomitant]
     Active Substance: PREDNISOLONE
     Dosage: 100 MG, BID
     Dates: start: 20150112, end: 20150206
  6. NEXAVAR [Suspect]
     Active Substance: SORAFENIB
     Indication: THYROID CANCER METASTATIC
     Dosage: 600 MG DAILY (400 MG +200 MG)
     Dates: start: 20150204, end: 20150209
  7. PREDNISOLON [Concomitant]
     Active Substance: PREDNISOLONE
     Dosage: 37.5 MG, BID
     Dates: end: 20141223

REACTIONS (4)
  - Palmar-plantar erythrodysaesthesia syndrome [Recovering/Resolving]
  - Eye haemorrhage [Recovered/Resolved]
  - Metastases to lung [None]
  - Ileal perforation [Recovered/Resolved]

NARRATIVE: CASE EVENT DATE: 20141030
